FAERS Safety Report 9164489 (Version 2)
Quarter: 2013Q2

REPORT INFORMATION
  Report Type: Spontaneous
  Country: JP (occurrence: JP)
  Receive Date: 20130315
  Receipt Date: 20130416
  Transmission Date: 20140414
  Serious: Yes (Death, Other)
  Sender: FDA-Public Use
  Company Number: PHHY2013JP023193

PATIENT
  Age: 67 Year
  Sex: Male

DRUGS (6)
  1. ZOMETA [Suspect]
     Indication: HYPOCALCAEMIA
     Dosage: 3 MG, (PER ADMINISTRATION)
     Route: 041
  2. CALCITONIN [Suspect]
     Indication: HYPOCALCAEMIA
     Dosage: 80 U, PER DAY
  3. FUROSEMIDE [Suspect]
     Indication: HYPOCALCAEMIA
     Dosage: 40 MG
  4. THYROID HORMONES [Concomitant]
  5. CALCIUM VITAMIN D [Concomitant]
  6. SALINE [Concomitant]

REACTIONS (4)
  - Ventricular fibrillation [Fatal]
  - Multi-organ failure [Unknown]
  - Insomnia [Unknown]
  - Fatigue [Unknown]
